APPROVED DRUG PRODUCT: RIMSO-50
Active Ingredient: DIMETHYL SULFOXIDE
Strength: 50%
Dosage Form/Route: SOLUTION;INTRAVESICAL
Application: N017788 | Product #001
Applicant: MYLAN INSTITUTIONAL LLC
Approved: Approved Prior to Jan 1, 1982 | RLD: Yes | RS: Yes | Type: RX